FAERS Safety Report 16127957 (Version 1)
Quarter: 2019Q1

REPORT INFORMATION
  Report Type: Spontaneous
  Country: US (occurrence: US)
  Receive Date: 20190328
  Receipt Date: 20190328
  Transmission Date: 20190418
  Serious: No
  Sender: FDA-Public Use
  Company Number: US-BAYER-2019-058697

PATIENT
  Age: 78 Year
  Sex: Female
  Weight: 70 kg

DRUGS (2)
  1. MIRALAX [Suspect]
     Active Substance: POLYETHYLENE GLYCOL 3350
     Indication: GASTROINTESTINAL DISORDER
  2. MIRALAX [Suspect]
     Active Substance: POLYETHYLENE GLYCOL 3350
     Indication: HAEMORRHOIDS
     Dosage: 1 DF, QD
     Route: 048

REACTIONS (3)
  - Product use issue [None]
  - Bowel movement irregularity [Unknown]
  - Product use in unapproved indication [Unknown]
